FAERS Safety Report 18753645 (Version 2)
Quarter: 2021Q1

REPORT INFORMATION
  Report Type: Spontaneous
  Country: ES (occurrence: ES)
  Receive Date: 20210118
  Receipt Date: 20210208
  Transmission Date: 20210419
  Serious: Yes (Other)
  Sender: FDA-Public Use
  Company Number: ES-BAXTER-2021BAX001055

PATIENT

DRUGS (9)
  1. GENOXAL [Suspect]
     Active Substance: CYCLOPHOSPHAMIDE
     Dosage: 600 MG/M2, CYCLIC, (ON DAY 1); CYCLICAL
     Route: 064
  2. GENOXAL [Suspect]
     Active Substance: CYCLOPHOSPHAMIDE
     Indication: HORMONE RECEPTOR POSITIVE BREAST CANCER
     Dosage: UNK, CYCLIC; CYCLICAL
     Route: 064
  3. ADRIAMYCIN [Suspect]
     Active Substance: DOXORUBICIN HYDROCHLORIDE
     Dosage: 50 MG/M2, CYCLIC (DOSE 50); CYCLICAL (50 MG/M2,CYCLICAL)
     Route: 064
  4. DOXIL [Suspect]
     Active Substance: DOXORUBICIN HYDROCHLORIDE
     Indication: HORMONE RECEPTOR POSITIVE BREAST CANCER
     Dosage: 60 MG/M2, CYCLIC (CONTINUOUS INTRAVENOUS INFUSION OVER 72 HOURS) CYCLICAL
     Route: 064
  5. GENOXAL [Suspect]
     Active Substance: CYCLOPHOSPHAMIDE
     Dosage: 50 MG/M2, CYCLIC; CYCLICAL
     Route: 064
  6. ADRIAMYCIN [Suspect]
     Active Substance: DOXORUBICIN HYDROCHLORIDE
     Indication: HORMONE RECEPTOR POSITIVE BREAST CANCER
     Dosage: 60 MG/M2, CYCLIC (CONTINUOUS INTRAVENOUS INFUSION OVER 72 HOURS); CYCLICAL (60 MG/M2,CYCLICAL)
     Route: 064
  7. 5?FLUOROURACIL [Suspect]
     Active Substance: FLUOROURACIL
     Indication: HORMONE RECEPTOR POSITIVE BREAST CANCER
     Dosage: 600 MG/M2, CYCLIC (2 BOLUS DOSES, ON DAYS 1 AND 4); CYCLICAL
     Route: 064
  8. DOXIL [Suspect]
     Active Substance: DOXORUBICIN HYDROCHLORIDE
     Dosage: 50 MG/M2, CYCLIC (DOSE 50); CYCLICAL
     Route: 064
  9. OXYTOCIN. [Suspect]
     Active Substance: OXYTOCIN
     Indication: LABOUR INDUCTION
     Route: 064

REACTIONS (2)
  - Foetal growth restriction [Unknown]
  - Foetal exposure during pregnancy [Unknown]
